FAERS Safety Report 19475231 (Version 1)
Quarter: 2021Q2

REPORT INFORMATION
  Report Type: Spontaneous
  Country: US (occurrence: US)
  Receive Date: 20210630
  Receipt Date: 20210630
  Transmission Date: 20210717
  Serious: Yes (Hospitalization, Other)
  Sender: FDA-Public Use
  Company Number: US-SA-2021SA202687

PATIENT
  Age: 57 Year
  Sex: Female

DRUGS (1)
  1. ANTI?THYMOCYTE GLOBULIN (RABBIT) NOS [Suspect]
     Active Substance: LAPINE T-LYMPHOCYTE IMMUNE GLOBULIN
     Indication: IMMUNOSUPPRESSANT DRUG THERAPY
     Dosage: 75 MG
     Route: 042

REACTIONS (13)
  - Disseminated intravascular coagulation [Recovered/Resolved]
  - Oedema [Recovered/Resolved]
  - Graft haemorrhage [Recovered/Resolved]
  - Thrombotic microangiopathy [Not Recovered/Not Resolved]
  - Rash [Recovered/Resolved]
  - Hypotension [Recovered/Resolved]
  - Retroperitoneal haemorrhage [Recovered/Resolved]
  - Thrombocytopenia [Recovered/Resolved]
  - Unresponsive to stimuli [Recovered/Resolved]
  - Petechiae [Recovered/Resolved]
  - Ischaemia [Not Recovered/Not Resolved]
  - Serum sickness [Recovered/Resolved]
  - Type III immune complex mediated reaction [Recovered/Resolved]
